FAERS Safety Report 7431857-8 (Version None)
Quarter: 2011Q2

REPORT INFORMATION
  Report Type: 
  Country: None (occurrence: None)
  Receive Date: 20110422
  Receipt Date: 20110412
  Transmission Date: 20111010
  Serious: Yes (Other)
  Sender: FDA-Public Use
  Company Number: US-ELI_LILLY_AND_COMPANY-US201011005643

PATIENT
  Sex: Female

DRUGS (12)
  1. FORTEO [Suspect]
     Indication: OSTEOPOROSIS
     Dosage: 20 UG, DAILY (1/D)
     Dates: start: 20101113
  2. LEVOTHYROXINE SODIUM [Concomitant]
  3. TYLENOL EXTRA STRENGTH [Concomitant]
  4. GLUCOSAMINE + CHONDROITIN [Concomitant]
  5. THERA TEARS [Concomitant]
  6. CALCIUM WITH VITAMIN D [Concomitant]
  7. ASPIRIN [Concomitant]
  8. PREMARIN [Concomitant]
  9. CELEBREX [Concomitant]
  10. NEXIUM [Concomitant]
  11. FORTEO [Suspect]
     Dosage: 20 UG, QD
     Route: 065
  12. SIMVASTATIN [Concomitant]

REACTIONS (4)
  - INJECTION SITE ERYTHEMA [None]
  - MUSCLE RUPTURE [None]
  - BURSITIS [None]
  - PAIN [None]
